FAERS Safety Report 11678560 (Version 1)
Quarter: 2015Q4

REPORT INFORMATION
  Report Type: Spontaneous
  Country: US (occurrence: US)
  Receive Date: 20151028
  Receipt Date: 20151028
  Transmission Date: 20160304
  Serious: No
  Sender: FDA-Public Use
  Company Number: US-ELI_LILLY_AND_COMPANY-US201510007661

PATIENT
  Age: 55 Year
  Sex: Male
  Weight: 69.39 kg

DRUGS (1)
  1. HUMALOG [Suspect]
     Active Substance: INSULIN LISPRO
     Indication: PRODUCT USED FOR UNKNOWN INDICATION
     Route: 058

REACTIONS (3)
  - Incorrect dose administered [Unknown]
  - Blood glucose decreased [Recovering/Resolving]
  - Visual acuity reduced transiently [Unknown]

NARRATIVE: CASE EVENT DATE: 20151020
